FAERS Safety Report 5211104-8 (Version None)
Quarter: 2007Q1

REPORT INFORMATION
  Report Type: 
  Country: None (occurrence: None)
  Receive Date: 20070117
  Receipt Date: 20070105
  Transmission Date: 20070707
  Serious: Yes (Other)
  Sender: FDA-Public Use
  Company Number: US-PFIZER INC-2006139354

PATIENT
  Sex: Male
  Weight: 60.8 kg

DRUGS (5)
  1. CHANTIX [Suspect]
     Indication: SMOKING CESSATION THERAPY
     Dosage: FREQ:BID: EVERY DAY
     Dates: start: 20060101, end: 20061102
  2. SPIRIVA [Concomitant]
  3. ALBUTEROL [Concomitant]
  4. SELECTIVE BETA-2-ADRENORECEPTOR AGONISTS [Concomitant]
  5. VITAMINS [Concomitant]

REACTIONS (5)
  - ABNORMAL DREAMS [None]
  - ABNORMAL SLEEP-RELATED EVENT [None]
  - ALCOHOLISM [None]
  - CHRONIC OBSTRUCTIVE PULMONARY DISEASE [None]
  - DYSPNOEA [None]
